FAERS Safety Report 4615452-1 (Version None)
Quarter: 2005Q1

REPORT INFORMATION
  Report Type: 
  Country: None (occurrence: None)
  Receive Date: 20050317
  Receipt Date: 20050304
  Transmission Date: 20050727
  Serious: Yes (Hospitalization)
  Sender: FDA-Public Use
  Company Number: 2005041334

PATIENT
  Age: 43 Year
  Sex: Female

DRUGS (1)
  1. AZULFIDINE EN-TABS [Suspect]
     Indication: RHEUMATOID ARTHRITIS
     Dosage: 1 GRAM, ORAL
     Route: 048
     Dates: start: 20050209, end: 20050223

REACTIONS (1)
  - INFECTIOUS MONONUCLEOSIS [None]
